FAERS Safety Report 8193572-5 (Version None)
Quarter: 2012Q1

REPORT INFORMATION
  Report Type: 
  Country: None (occurrence: None)
  Receive Date: 20120308
  Receipt Date: 20120202
  Transmission Date: 20120608
  Serious: Yes (Hospitalization)
  Sender: FDA-Public Use
  Company Number: US-ROCHE-1046522

PATIENT
  Age: 56 Year
  Sex: Male
  Weight: 531.18 kg

DRUGS (4)
  1. XELODA [Suspect]
     Indication: COLORECTAL CANCER METASTATIC
     Route: 048
     Dates: start: 20120105, end: 20120219
  2. LEXAPRO [Concomitant]
     Indication: ANXIETY
     Route: 048
  3. OXYCONTIN [Concomitant]
     Indication: PAIN
     Route: 048
  4. COUMADIN [Concomitant]
     Route: 048

REACTIONS (2)
  - DISEASE PROGRESSION [None]
  - BLOOD BILIRUBIN INCREASED [None]
